FAERS Safety Report 18922618 (Version 1)
Quarter: 2021Q1

REPORT INFORMATION
  Report Type: Spontaneous
  Country: ES (occurrence: ES)
  Receive Date: 20210222
  Receipt Date: 20210222
  Transmission Date: 20210420
  Serious: Yes (Hospitalization)
  Sender: FDA-Public Use
  Company Number: ES-MYLANLABS-2021M1010498

PATIENT
  Age: 54 Year
  Sex: Female
  Weight: 90 kg

DRUGS (10)
  1. REMIFENTANIL [Concomitant]
     Active Substance: REMIFENTANIL
     Indication: SEDATIVE THERAPY
     Dosage: UNK
     Route: 065
  2. ROCURONIUM [Interacting]
     Active Substance: ROCURONIUM BROMIDE
     Indication: MUSCLE RELAXANT THERAPY
     Dosage: 0.5 MILLIGRAM/KILOGRAM
     Route: 065
  3. DEXAMETHASONE. [Suspect]
     Active Substance: DEXAMETHASONE
     Indication: COVID-19 PNEUMONIA
     Dosage: 20 MILLIGRAM, QD
     Route: 065
  4. LOPINAVIR/RITONAVIR [Suspect]
     Active Substance: LOPINAVIR\RITONAVIR
     Indication: COVID-19 PNEUMONIA
     Dosage: 1 DOSAGE FORM, BID
     Route: 065
  5. CISATRACURIUM. [Concomitant]
     Active Substance: CISATRACURIUM
     Indication: MUSCLE RELAXANT THERAPY
     Dosage: UNK; CONTINUOUS INFUSION
  6. DEXMEDETOMIDINE. [Concomitant]
     Active Substance: DEXMEDETOMIDINE
     Indication: SEDATIVE THERAPY
     Dosage: UNK
     Route: 065
  7. MIDAZOLAM. [Concomitant]
     Active Substance: MIDAZOLAM
     Indication: SEDATIVE THERAPY
     Dosage: UNK
     Route: 065
  8. PROPOFOL. [Concomitant]
     Active Substance: PROPOFOL
     Indication: SEDATIVE THERAPY
     Dosage: UNK
     Route: 065
  9. FENTANYL. [Concomitant]
     Active Substance: FENTANYL
     Indication: SEDATIVE THERAPY
     Dosage: UNK
     Route: 065
  10. DEXAMETHASONE. [Suspect]
     Active Substance: DEXAMETHASONE
     Dosage: 10 MILLIGRAM, QD
     Route: 065

REACTIONS (3)
  - Off label use [Unknown]
  - Drug interaction [Recovering/Resolving]
  - Myopathy [Recovering/Resolving]
